FAERS Safety Report 6323303-2 (Version None)
Quarter: 2009Q3

REPORT INFORMATION
  Report Type: 
  Country: None (occurrence: None)
  Receive Date: 20090824
  Receipt Date: 20090409
  Transmission Date: 20100115
  Serious: No
  Sender: FDA-Public Use
  Company Number: US-ABBOTT-09P-163-0567608-00

PATIENT
  Sex: Male
  Weight: 107.6 kg

DRUGS (9)
  1. NIASPAN [Suspect]
     Indication: LOW DENSITY LIPOPROTEIN INCREASED
     Route: 048
     Dates: start: 20081201
  2. NIASPAN [Suspect]
     Indication: HIGH DENSITY LIPOPROTEIN DECREASED
  3. PREVACID [Suspect]
     Indication: ABDOMINAL DISCOMFORT
     Route: 048
     Dates: start: 19940101, end: 20090201
  4. ACIPHEX [Suspect]
     Indication: ABDOMINAL DISCOMFORT
     Route: 048
     Dates: start: 20090201
  5. DURAGESIC-100 [Concomitant]
     Indication: BACK PAIN
  6. MEDTRONIX IMPLANT [Concomitant]
     Indication: BACK PAIN
  7. NORCO [Concomitant]
     Indication: BACK PAIN
  8. LYRICA [Concomitant]
     Indication: DRUG USE FOR UNKNOWN INDICATION
  9. CYMBALTA [Concomitant]
     Indication: DRUG USE FOR UNKNOWN INDICATION

REACTIONS (3)
  - RASH GENERALISED [None]
  - RASH VESICULAR [None]
  - SKIN BURNING SENSATION [None]
